FAERS Safety Report 7640634-4 (Version None)
Quarter: 2011Q3

REPORT INFORMATION
  Report Type: 
  Country: None (occurrence: None)
  Receive Date: 20110721
  Receipt Date: 20110714
  Transmission Date: 20111222
  Serious: Yes (Other)
  Sender: FDA-Public Use
  Company Number: US-2011-10484

PATIENT
  Age: 17 Year
  Sex: Female

DRUGS (5)
  1. BUSULFAN [Suspect]
     Indication: STEM CELL TRANSPLANT
     Dosage: 0.8 MG/KG, Q6HR, INTRAVENOUS
     Route: 042
  2. TACROLIMUS [Concomitant]
  3. ANTI-THYMOCYTE GLOBULIN RABBIT NOS [Concomitant]
  4. FLUDARABINE PHOSPHATE [Suspect]
     Indication: STEM CELL TRANSPLANT
     Dosage: 30 MG/M2, DAILY,IV
     Route: 042
  5. METHOTREXATE [Concomitant]

REACTIONS (5)
  - EVANS SYNDROME [None]
  - CENTRAL OBESITY [None]
  - SKIN STRIAE [None]
  - DRUG INTOLERANCE [None]
  - CUSHINGOID [None]
